FAERS Safety Report 24448672 (Version 4)
Quarter: 2024Q4

REPORT INFORMATION
  Report Type: Report from Study
  Country: JP (occurrence: JP)
  Receive Date: 20241017
  Receipt Date: 20241210
  Transmission Date: 20250115
  Serious: Yes (Death, Other)
  Sender: UCB
  Company Number: JP-UCBJ-CD202409634UCBPHAPROD

PATIENT
  Age: 25 Year
  Sex: Female
  Weight: 41 kg

DRUGS (5)
  1. FENFLURAMINE HYDROCHLORIDE [Suspect]
     Active Substance: FENFLURAMINE HYDROCHLORIDE
     Indication: Severe myoclonic epilepsy of infancy
     Dosage: UNK
     Route: 048
     Dates: start: 20231209
  2. FENFLURAMINE HYDROCHLORIDE [Suspect]
     Active Substance: FENFLURAMINE HYDROCHLORIDE
     Dosage: 0.19 MILLIGRAM/KILOGRAM, 2X/DAY (BID)
     Route: 048
     Dates: start: 20231222, end: 20241003
  3. DIACOMIT [Concomitant]
     Active Substance: STIRIPENTOL
     Indication: Severe myoclonic epilepsy of infancy
     Dosage: 2000 MILLIGRAM (DAILY)
     Route: 048
     Dates: end: 20241003
  4. VALPROATE SODIUM [Concomitant]
     Active Substance: VALPROATE SODIUM
     Indication: Severe myoclonic epilepsy of infancy
     Dosage: 500 MILLIGRAM (DAILY)
     Route: 048
     Dates: end: 20241003
  5. MYSTAN [Concomitant]
     Active Substance: CLOBAZAM
     Indication: Severe myoclonic epilepsy of infancy
     Dosage: 10 MILLIGRAM
     Route: 048
     Dates: end: 20241003

REACTIONS (7)
  - Status epilepticus [Fatal]
  - Drowning [Fatal]
  - Somnolence [Unknown]
  - Decreased appetite [Unknown]
  - Weight decreased [Unknown]
  - Prescribed overdose [Unknown]
  - Off label use [Unknown]

NARRATIVE: CASE EVENT DATE: 20231222
